FAERS Safety Report 8621761-1 (Version None)
Quarter: 2012Q3

REPORT INFORMATION
  Report Type: 
  Country: None (occurrence: None)
  Receive Date: 20120821
  Receipt Date: 20120821
  Transmission Date: 20120928
  Serious: Yes (Hospitalization)
  Sender: FDA-Public Use
  Company Number: None

PATIENT
  Age: 73 Year
  Sex: Female

DRUGS (1)
  1. XELODA [Suspect]
     Indication: BREAST CANCER
     Dosage: 2000MG UD PO
     Route: 048
     Dates: start: 20120630, end: 20120702

REACTIONS (4)
  - OROPHARYNGEAL PAIN [None]
  - STOMATITIS [None]
  - DYSPHAGIA [None]
  - DECREASED APPETITE [None]
